FAERS Safety Report 21896376 (Version 3)
Quarter: 2023Q2

REPORT INFORMATION
  Report Type: Report from Study
  Country: US (occurrence: US)
  Receive Date: 20230123
  Receipt Date: 20230608
  Transmission Date: 20230722
  Serious: Yes (Hospitalization, Other)
  Sender: FDA-Public Use
  Company Number: US-ABBVIE-4277859

PATIENT
  Age: 72 Year
  Sex: Female

DRUGS (2)
  1. HUMIRA [Suspect]
     Active Substance: ADALIMUMAB
     Indication: Rheumatoid arthritis
     Dosage: STRENGTH: 40MG?CITRATE FREE
     Route: 058
     Dates: start: 20220118
  2. HUMIRA [Suspect]
     Active Substance: ADALIMUMAB
     Dosage: STRENGTH: 40MG?CITRATE FREE
     Route: 058

REACTIONS (10)
  - Bronchitis [Recovering/Resolving]
  - Musculoskeletal stiffness [Unknown]
  - Fall [Unknown]
  - Oxygen saturation decreased [Unknown]
  - Cataract [Unknown]
  - Injection site reaction [Unknown]
  - Cataract [Unknown]
  - Fatigue [Not Recovered/Not Resolved]
  - Illness [Unknown]
  - Joint injury [Recovering/Resolving]

NARRATIVE: CASE EVENT DATE: 20230101
